FAERS Safety Report 6562323-X (Version None)
Quarter: 2010Q1

REPORT INFORMATION
  Report Type: 
  Country: None (occurrence: None)
  Receive Date: 20100130
  Receipt Date: 20091102
  Transmission Date: 20100710
  Serious: No
  Sender: FDA-Public Use
  Company Number: US-ABBOTT-09P-163-0606421-00

PATIENT
  Sex: Female
  Weight: 77.18 kg

DRUGS (5)
  1. HUMIRA [Suspect]
     Indication: CROHN'S DISEASE
     Dates: start: 20091016
  2. MERCAPTOPURINE [Suspect]
     Indication: DRUG USE FOR UNKNOWN INDICATION
     Dates: start: 20090810, end: 20091018
  3. ENTOCORT EC [Concomitant]
     Indication: DRUG USE FOR UNKNOWN INDICATION
     Dates: start: 20090810, end: 20091027
  4. PENTASA [Concomitant]
     Indication: DRUG USE FOR UNKNOWN INDICATION
  5. VALTREX [Concomitant]
     Indication: GENITAL HERPES

REACTIONS (4)
  - FATIGUE [None]
  - FEELING COLD [None]
  - NAUSEA [None]
  - PAROSMIA [None]
